FAERS Safety Report 6891781-6 (Version None)
Quarter: 2010Q3

REPORT INFORMATION
  Report Type: 
  Country: None (occurrence: None)
  Receive Date: 20100731
  Receipt Date: 20071019
  Transmission Date: 20110219
  Serious: No
  Sender: FDA-Public Use
  Company Number: US-PFIZER INC-2007088944

PATIENT
  Sex: Male
  Weight: 52.3 kg

DRUGS (3)
  1. NEURONTIN [Suspect]
     Indication: PAIN
  2. ALLEGRA [Concomitant]
  3. THYROID TAB [Concomitant]

REACTIONS (2)
  - RASH MACULAR [None]
  - URTICARIA [None]
